FAERS Safety Report 20749885 (Version 1)
Quarter: 2022Q2

REPORT INFORMATION
  Report Type: Spontaneous
  Country: US (occurrence: None)
  Receive Date: 20220425
  Receipt Date: 20220425
  Transmission Date: 20220720
  Serious: Yes (Death)
  Sender: FDA-Public Use
  Company Number: None

PATIENT
  Age: 84 Year
  Sex: Female
  Weight: 49.5 kg

DRUGS (1)
  1. CEFDINIR [Suspect]
     Active Substance: CEFDINIR
     Indication: Labyrinthitis
     Dosage: OTHER QUANTITY : 1 CAPSULE(S);?FREQUENCY : TWICE A DAY;?
     Route: 048
     Dates: start: 20220310, end: 20220322

REACTIONS (4)
  - Cerebral infarction [None]
  - Atrial fibrillation [None]
  - Confusional state [None]
  - Seizure [None]

NARRATIVE: CASE EVENT DATE: 20220322
